FAERS Safety Report 14996810 (Version 1)
Quarter: 2018Q2

REPORT INFORMATION
  Report Type: Spontaneous
  Country: CN (occurrence: CN)
  Receive Date: 20180611
  Receipt Date: 20180611
  Transmission Date: 20180711
  Serious: Yes (Other)
  Sender: FDA-Public Use
  Company Number: CN-LANNETT COMPANY, INC.-CN-2018LAN000732

PATIENT
  Age: 11 Year
  Sex: Male

DRUGS (2)
  1. TEMOZOLOMIDE. [Suspect]
     Active Substance: TEMOZOLOMIDE
     Dosage: 150 MG/M2, FOR 5 DAYS EVERY 28 DAY COURSE)
     Route: 065
     Dates: start: 201309, end: 201401
  2. TEMOZOLOMIDE. [Suspect]
     Active Substance: TEMOZOLOMIDE
     Indication: GLIOBLASTOMA MULTIFORME
     Dosage: 75 MG/M2, (FOR 5 DAYS)
     Route: 048
     Dates: start: 201308

REACTIONS (1)
  - B precursor type acute leukaemia [Recovered/Resolved]
